FAERS Safety Report 8600273-5 (Version None)
Quarter: 2012Q3

REPORT INFORMATION
  Report Type: 
  Country: None (occurrence: None)
  Receive Date: 20120817
  Receipt Date: 20120810
  Transmission Date: 20120928
  Serious: No
  Sender: FDA-Public Use
  Company Number: US-BIOGENIDEC-2012BI031120

PATIENT
  Sex: Male

DRUGS (1)
  1. TYSABRI [Suspect]
     Indication: MULTIPLE SCLEROSIS
     Route: 042
     Dates: start: 20120425

REACTIONS (12)
  - TREMOR [None]
  - EXERCISE TOLERANCE DECREASED [None]
  - DYSKINESIA [None]
  - ARTHRALGIA [None]
  - GAIT DISTURBANCE [None]
  - BODY TEMPERATURE INCREASED [None]
  - MULTIPLE SCLEROSIS [None]
  - FEELING COLD [None]
  - MUSCLE SPASMS [None]
  - GENERAL SYMPTOM [None]
  - MUSCULOSKELETAL DISORDER [None]
  - MOBILITY DECREASED [None]
